FAERS Safety Report 14537712 (Version 3)
Quarter: 2018Q1

REPORT INFORMATION
  Report Type: Spontaneous
  Country: FR (occurrence: FR)
  Receive Date: 20180215
  Receipt Date: 20180326
  Transmission Date: 20180509
  Serious: Yes (Other)
  Sender: FDA-Public Use
  Company Number: FR-ABBVIE-18S-056-2254067-00

PATIENT
  Age: 16 Year
  Sex: Male

DRUGS (11)
  1. DEPAKINE [Suspect]
     Active Substance: VALPROATE SODIUM
     Indication: IMPULSIVE BEHAVIOUR
     Route: 048
     Dates: start: 2006, end: 20171122
  2. ABILIFY MAINTENA [Suspect]
     Active Substance: ARIPIPRAZOLE
     Indication: ABNORMAL BEHAVIOUR
     Route: 065
  3. DEPAKINE [Suspect]
     Active Substance: VALPROATE SODIUM
     Indication: AGGRESSION
     Route: 048
  4. TERCIAN [Suspect]
     Active Substance: CYAMEMAZINE
     Indication: AGGRESSION
     Route: 048
  5. DEPAKINE [Suspect]
     Active Substance: VALPROATE SODIUM
     Indication: ABNORMAL BEHAVIOUR
  6. TERCIAN [Suspect]
     Active Substance: CYAMEMAZINE
     Indication: AFFECTIVE DISORDER
     Dosage: 25 MG QID
     Route: 048
     Dates: start: 2006, end: 20171122
  7. TERCIAN [Suspect]
     Active Substance: CYAMEMAZINE
     Indication: ABNORMAL BEHAVIOUR
     Route: 048
  8. ABILIFY MAINTENA [Suspect]
     Active Substance: ARIPIPRAZOLE
     Indication: IMPULSIVE BEHAVIOUR
     Route: 065
     Dates: start: 2006, end: 20171122
  9. DEPAKINE [Suspect]
     Active Substance: VALPROATE SODIUM
     Indication: AFFECTIVE DISORDER
     Route: 048
  10. ABILIFY MAINTENA [Suspect]
     Active Substance: ARIPIPRAZOLE
     Indication: AFFECTIVE DISORDER
     Route: 065
  11. TERCIAN [Suspect]
     Active Substance: CYAMEMAZINE
     Indication: IMPULSIVE BEHAVIOUR
     Route: 048

REACTIONS (5)
  - Prescribed underdose [Unknown]
  - Product use in unapproved indication [Unknown]
  - Anaemia [Unknown]
  - Drug administered to patient of inappropriate age [Unknown]
  - Neutropenia [Unknown]

NARRATIVE: CASE EVENT DATE: 2016
